FAERS Safety Report 8611090 (Version 2)
Quarter: 2015Q1

REPORT INFORMATION
  Report Type: Spontaneous
  Country: US (occurrence: US)
  Receive Date: 20120612
  Receipt Date: 20150302
  Transmission Date: 20150721
  Serious: No
  Sender: FDA-Public Use
  Company Number: US-ASTRAZENECA-2010SE57313

PATIENT
  Age: 54 Year
  Sex: Female

DRUGS (1)
  1. NEXIUM [Suspect]
     Active Substance: ESOMEPRAZOLE MAGNESIUM
     Route: 048

REACTIONS (5)
  - Malaise [Unknown]
  - Drug dose omission [Unknown]
  - Gastrooesophageal reflux disease [Unknown]
  - Barrett^s oesophagus [Unknown]
  - Vomiting [Unknown]
